FAERS Safety Report 4810227-2 (Version None)
Quarter: 2005Q4

REPORT INFORMATION
  Report Type: 
  Country: None (occurrence: None)
  Receive Date: 20051026
  Receipt Date: 20050912
  Transmission Date: 20060501
  Serious: Yes (Death)
  Sender: FDA-Public Use
  Company Number: US-GLAXOSMITHKLINE-A0578756A

PATIENT
  Age: 65 Year
  Sex: Male

DRUGS (1)
  1. ESKALITH [Suspect]
     Indication: BIPOLAR DISORDER
     Route: 065
     Dates: end: 20030801

REACTIONS (3)
  - DEATH [None]
  - DIABETES MELLITUS [None]
  - RENAL FAILURE [None]
